FAERS Safety Report 9848486 (Version 1)
Quarter: 2013Q4

REPORT INFORMATION
  Report Type: Spontaneous
  Country: US (occurrence: None)
  Receive Date: 20131224
  Receipt Date: 20131224
  Transmission Date: 20140711
  Serious: Yes (Other)
  Sender: FDA-Public Use
  Company Number: PHEH2013US022800

PATIENT
  Age: 71 Year
  Sex: Female

DRUGS (1)
  1. AFINITOR (RAD) TABLET, 10MG [Suspect]
     Indication: BREAST CANCER
     Route: 048

REACTIONS (4)
  - Pulmonary embolism [None]
  - Stomatitis [None]
  - Mouth ulceration [None]
  - Dyspnoea [None]
